FAERS Safety Report 12002449 (Version 1)
Quarter: 2016Q1

REPORT INFORMATION
  Report Type: Spontaneous
  Country: US (occurrence: US)
  Receive Date: 20160204
  Receipt Date: 20160204
  Transmission Date: 20160526
  Serious: No
  Sender: FDA-Public Use
  Company Number: US-ABBVIE-15K-163-1426389-00

PATIENT
  Age: 73 Year
  Sex: Female
  Weight: 59.93 kg

DRUGS (5)
  1. SYNTHROID [Concomitant]
     Active Substance: LEVOTHYROXINE SODIUM
     Indication: THYROID DISORDER
  2. HUMIRA [Suspect]
     Active Substance: ADALIMUMAB
     Indication: AUTOIMMUNE DISORDER
     Route: 058
     Dates: start: 20150710
  3. PROMETRIUM [Concomitant]
     Active Substance: PROGESTERONE
     Indication: PRODUCT USED FOR UNKNOWN INDICATION
  4. ESTRACE [Concomitant]
     Active Substance: ESTRADIOL
     Indication: BONE DISORDER
  5. CORTEF [Concomitant]
     Active Substance: HYDROCORTISONE
     Indication: HYPOTHALAMO-PITUITARY DISORDER

REACTIONS (2)
  - Fatigue [Not Recovered/Not Resolved]
  - Somnolence [Unknown]

NARRATIVE: CASE EVENT DATE: 201507
